FAERS Safety Report 24992012 (Version 2)
Quarter: 2025Q1

REPORT INFORMATION
  Report Type: Spontaneous
  Country: PL (occurrence: PL)
  Receive Date: 20250220
  Receipt Date: 20250306
  Transmission Date: 20250408
  Serious: No
  Sender: PFIZER
  Company Number: PL-Adamed-2025-AER-00036

PATIENT
  Age: 52 Year
  Sex: Male

DRUGS (1)
  1. CARBOPLATIN [Suspect]
     Active Substance: CARBOPLATIN
     Indication: Hepatic neuroendocrine tumour
     Route: 042

REACTIONS (1)
  - Off label use [Unknown]
